FAERS Safety Report 10247701 (Version 6)
Quarter: 2014Q3

REPORT INFORMATION
  Report Type: Spontaneous
  Country: US (occurrence: US)
  Receive Date: 20140619
  Receipt Date: 20140910
  Transmission Date: 20150326
  Serious: Yes (Death, Hospitalization, Other)
  Sender: FDA-Public Use
  Company Number: US-ACTELION-A-US2014-100458

PATIENT
  Age: 77 Year
  Sex: Male

DRUGS (4)
  1. TRACLEER [Suspect]
     Active Substance: BOSENTAN\BOSENTAN MONOHYDRATE
     Indication: PULMONARY ARTERIAL HYPERTENSION
     Dosage: 125 MG, BID
     Route: 048
  2. SILDENAFIL [Concomitant]
     Active Substance: SILDENAFIL
  3. TYVASO [Concomitant]
     Active Substance: TREPROSTINIL
  4. COUMADIN [Concomitant]
     Active Substance: WARFARIN SODIUM

REACTIONS (13)
  - Blood count abnormal [Unknown]
  - Death [Fatal]
  - Frequent bowel movements [Unknown]
  - Anaemia [Recovering/Resolving]
  - Pancreaticoduodenectomy [Unknown]
  - Haemoglobin decreased [Recovering/Resolving]
  - Inguinal hernia [Unknown]
  - Gastrointestinal haemorrhage [Recovering/Resolving]
  - Haematocrit decreased [Recovering/Resolving]
  - Rectal haemorrhage [Unknown]
  - Hypotension [Unknown]
  - Red blood cell count decreased [Recovering/Resolving]
  - Packed red blood cell transfusion [Recovering/Resolving]

NARRATIVE: CASE EVENT DATE: 20140622
